FAERS Safety Report 8073098-X (Version None)
Quarter: 2012Q1

REPORT INFORMATION
  Report Type: 
  Country: None (occurrence: None)
  Receive Date: 20120123
  Receipt Date: 20120123
  Transmission Date: 20120608
  Serious: Yes (Death)
  Sender: FDA-Public Use
  Company Number: None

PATIENT
  Sex: Male

DRUGS (2)
  1. REVLIMID [Suspect]
     Dosage: REVLIMID 15MG QD ORALLY
     Route: 048
  2. REVLIMID [Suspect]
     Dosage: REVLIMID 25MG QD ORALLY
     Route: 048

REACTIONS (4)
  - NEUTROPENIA [None]
  - BACK PAIN [None]
  - DIARRHOEA [None]
  - ANAEMIA [None]
